FAERS Safety Report 4423701-8 (Version None)
Quarter: 2004Q3

REPORT INFORMATION
  Report Type: 
  Country: None (occurrence: None)
  Receive Date: 20040805
  Receipt Date: 20040707
  Transmission Date: 20050211
  Serious: Yes (Death)
  Sender: FDA-Public Use
  Company Number: JP-JNJFOC-20040402658

PATIENT
  Age: 75 Year
  Sex: Male

DRUGS (14)
  1. FENTANYL [Suspect]
     Indication: CANCER PAIN
     Dosage: 2.5 MG, 1 IN 3 DAY, TRANSDERMAL
     Route: 062
     Dates: start: 20030901, end: 20040310
  2. BERAPROST SODIUM (BERAPROST SODIUM) [Concomitant]
  3. AGENTS FOR PEPTIC ULCER (DRUGS FOR TREATMENT OF PEPTIC ULCER) [Concomitant]
  4. REBAMIPIDE (REBAMIPIDE) [Concomitant]
  5. MECOBALAMIN (MECOBALAMIN) [Concomitant]
  6. LAFUTIDINE           (ALL OTHER THERAPEUTIC PRODUCTS) [Concomitant]
  7. CERNITIN (CERNILTON) [Concomitant]
  8. AMLODIPINE BESYLATE [Concomitant]
  9. GLIBENCLAMINE (GLIBENCLAMIDE) [Concomitant]
  10. KETOPROFEN [Concomitant]
  11. DOMPERIDONE (DOMPERIDONE) [Concomitant]
  12. MORPHINE SULFATE [Concomitant]
  13. NOGITECAN HYDROCHLORIDE          (ALL OTHER THERAPEUTIC PRODUCTS) [Concomitant]
  14. FLUTAMIDE [Concomitant]

REACTIONS (6)
  - ALANINE AMINOTRANSFERASE INCREASED [None]
  - ASPARTATE AMINOTRANSFERASE INCREASED [None]
  - BLOOD ALKALINE PHOSPHATASE INCREASED [None]
  - LUNG NEOPLASM MALIGNANT [None]
  - MALIGNANT NEOPLASM PROGRESSION [None]
  - PROSTATE CANCER [None]
